FAERS Safety Report 8462478-6 (Version None)
Quarter: 2012Q2

REPORT INFORMATION
  Report Type: 
  Country: None (occurrence: None)
  Receive Date: 20120625
  Receipt Date: 20120614
  Transmission Date: 20120825
  Serious: Yes (Other)
  Sender: FDA-Public Use
  Company Number: FR-ELI_LILLY_AND_COMPANY-FR201206005580

PATIENT
  Sex: Male

DRUGS (1)
  1. EFFIENT [Suspect]
     Route: 048

REACTIONS (2)
  - ANGIOEDEMA [None]
  - URTICARIA [None]
